FAERS Safety Report 11292557 (Version 2)
Quarter: 2015Q3

REPORT INFORMATION
  Report Type: Spontaneous
  Country: CH (occurrence: CH)
  Receive Date: 20150722
  Receipt Date: 20150921
  Transmission Date: 20151125
  Serious: Yes (Hospitalization)
  Sender: FDA-Public Use
  Company Number: CH-TEVA-579836ISR

PATIENT
  Age: 43 Year
  Sex: Male

DRUGS (1)
  1. AMLODIPINE [Suspect]
     Active Substance: AMLODIPINE BESYLATE
     Indication: HYPERTENSION
     Dosage: DRUG WAS STOPPED, UNCLEAR WHETHER THE AES WERE THE REASON
     Route: 065

REACTIONS (3)
  - Hypertension [Unknown]
  - Cerebral ischaemia [Unknown]
  - Dysarthria [Recovering/Resolving]
